FAERS Safety Report 4704472-4 (Version None)
Quarter: 2005Q2

REPORT INFORMATION
  Report Type: 
  Country: None (occurrence: None)
  Receive Date: 20050630
  Receipt Date: 20050630
  Transmission Date: 20051028
  Serious: Yes (Hospitalization)
  Sender: FDA-Public Use
  Company Number: None

PATIENT
  Age: 81 Year
  Sex: Male
  Weight: 83.0083 kg

DRUGS (4)
  1. ADENOSCAN [Suspect]
     Indication: DIZZINESS
     Dosage: 69.6 ONCE INTRAVENOUS
     Route: 042
     Dates: start: 20050617, end: 20050617
  2. CARDIOLITE [Suspect]
     Dosage: ONCE INTRAVENOU
     Route: 042
     Dates: start: 20050617, end: 20050617
  3. ASPIRIN [Concomitant]
  4. ATENOLOL [Concomitant]

REACTIONS (2)
  - PROCEDURAL COMPLICATION [None]
  - PYREXIA [None]
